FAERS Safety Report 5867185-1 (Version None)
Quarter: 2008Q3

REPORT INFORMATION
  Report Type: 
  Country: None (occurrence: None)
  Receive Date: 20080829
  Receipt Date: 20080829
  Transmission Date: 20090109
  Serious: Yes (Other)
  Sender: FDA-Public Use
  Company Number: None

PATIENT
  Sex: Female
  Weight: 96.4801 kg

DRUGS (1)
  1. TAPAZOLE [Suspect]
     Indication: HYPERTHYROIDISM
     Dosage: 3 TABS QAM PO
     Route: 048
     Dates: start: 20080728, end: 20080811

REACTIONS (1)
  - RASH GENERALISED [None]
